FAERS Safety Report 14216535 (Version 3)
Quarter: 2018Q1

REPORT INFORMATION
  Report Type: Spontaneous
  Country: US (occurrence: US)
  Receive Date: 20171122
  Receipt Date: 20180205
  Transmission Date: 20180508
  Serious: Yes (Other)
  Sender: FDA-Public Use
  Company Number: US-PFIZER INC-2017501641

PATIENT
  Age: 51 Year
  Sex: Female

DRUGS (1)
  1. ROPIVACAINE HYDROCHLORIDE. [Suspect]
     Active Substance: ROPIVACAINE HYDROCHLORIDE
     Indication: ANAESTHESIA
     Dosage: 1.8 MG/KG, UNK (INFUSION)
     Route: 008
     Dates: start: 20140912, end: 20140912

REACTIONS (2)
  - Anaesthetic complication [Recovered/Resolved]
  - Quadriparesis [Recovered/Resolved]

NARRATIVE: CASE EVENT DATE: 20140912
